FAERS Safety Report 19854571 (Version 1)
Quarter: 2021Q3

REPORT INFORMATION
  Report Type: Spontaneous
  Country: US (occurrence: US)
  Receive Date: 20210916
  Receipt Date: 20210916
  Transmission Date: 20211014
  Serious: Yes (Hospitalization)
  Sender: FDA-Public Use
  Company Number: None

PATIENT
  Age: 60 Year
  Sex: Male

DRUGS (1)
  1. INLYTA [Suspect]
     Active Substance: AXITINIB
     Indication: RENAL CANCER
     Route: 048
     Dates: start: 20210602

REACTIONS (5)
  - Fall [None]
  - Cerebral haemorrhage [None]
  - Ankle fracture [None]
  - Neck injury [None]
  - Spinal fracture [None]

NARRATIVE: CASE EVENT DATE: 20210909
